FAERS Safety Report 14593103 (Version 2)
Quarter: 2018Q1

REPORT INFORMATION
  Report Type: Spontaneous
  Country: HK (occurrence: HK)
  Receive Date: 20180302
  Receipt Date: 20180320
  Transmission Date: 20180509
  Serious: Yes (Hospitalization, Other)
  Sender: FDA-Public Use
  Company Number: HK-ALEXION-A201802184

PATIENT
  Age: 3 Year
  Sex: Male

DRUGS (3)
  1. SOLIRIS [Suspect]
     Active Substance: ECULIZUMAB
     Dosage: UNK
     Route: 042
     Dates: start: 20180215
  2. SOLIRIS [Suspect]
     Active Substance: ECULIZUMAB
     Indication: ATYPICAL HAEMOLYTIC URAEMIC SYNDROME
     Dosage: UNK
     Route: 042
     Dates: end: 20170324
  3. SOLIRIS [Suspect]
     Active Substance: ECULIZUMAB
     Dosage: UNK
     Route: 042
     Dates: start: 20180222

REACTIONS (5)
  - Diarrhoea [Unknown]
  - Thrombotic microangiopathy [Unknown]
  - Red blood cell schistocytes present [Unknown]
  - Blood lactate dehydrogenase increased [Unknown]
  - Influenza [Unknown]

NARRATIVE: CASE EVENT DATE: 20180307
